FAERS Safety Report 11821914 (Version 6)
Quarter: 2017Q4

REPORT INFORMATION
  Report Type: Spontaneous
  Country: US (occurrence: US)
  Receive Date: 20151210
  Receipt Date: 20171010
  Transmission Date: 20180320
  Serious: No
  Sender: FDA-Public Use
  Company Number: US-JNJFOC-20150804759

PATIENT
  Age: 72 Year
  Sex: Female
  Weight: 56 kg

DRUGS (40)
  1. IMBRUVICA [Suspect]
     Active Substance: IBRUTINIB
     Indication: ACUTE LYMPHOCYTIC LEUKAEMIA
     Route: 048
     Dates: start: 201511, end: 20160606
  2. SUCRALFATE. [Concomitant]
     Active Substance: SUCRALFATE
  3. TYLENOL [Concomitant]
     Active Substance: ACETAMINOPHEN
     Indication: PAIN
     Dosage: AS NEEDED
     Route: 048
  4. QUESTRAN [Concomitant]
     Active Substance: CHOLESTYRAMINE
     Route: 048
  5. FOLIC ACID. [Concomitant]
     Active Substance: FOLIC ACID
  6. GLICLAZIDE [Concomitant]
     Active Substance: GLICLAZIDE
     Route: 048
  7. ALAVERT ALLERGY [Concomitant]
     Active Substance: LORATADINE
     Route: 048
  8. BACTRIM [Concomitant]
     Active Substance: SULFAMETHOXAZOLE\TRIMETHOPRIM
     Route: 048
  9. PREDNISONE. [Concomitant]
     Active Substance: PREDNISONE
     Route: 048
  10. IMBRUVICA [Suspect]
     Active Substance: IBRUTINIB
     Indication: ACUTE LYMPHOCYTIC LEUKAEMIA
     Route: 048
     Dates: start: 201412, end: 201506
  11. IMBRUVICA [Suspect]
     Active Substance: IBRUTINIB
     Indication: ACUTE LYMPHOCYTIC LEUKAEMIA
     Route: 048
     Dates: start: 20170614
  12. IMBRUVICA [Suspect]
     Active Substance: IBRUTINIB
     Indication: CHRONIC LYMPHOCYTIC LEUKAEMIA
     Route: 048
     Dates: start: 20170614
  13. IPRATROPIUM BROMIDE W/SALBUTAMOL SULFATE [Concomitant]
     Indication: DYSPNOEA
     Dosage: AS NEEDED
     Route: 048
  14. IPRATROPIUM BROMIDE W/SALBUTAMOL SULFATE [Concomitant]
     Indication: WHEEZING
     Dosage: AS NEEDED
     Route: 048
  15. SYMBICORT [Concomitant]
     Active Substance: BUDESONIDE\FORMOTEROL FUMARATE DIHYDRATE
     Route: 065
  16. BACTROBAN [Concomitant]
     Active Substance: MUPIROCIN\MUPIROCIN CALCIUM
     Indication: RASH
     Route: 061
  17. K-DUR [Concomitant]
     Active Substance: POTASSIUM CHLORIDE
     Route: 048
  18. VITAMIN D [Concomitant]
     Active Substance: CHOLECALCIFEROL
     Route: 048
  19. VANCOMYCIN [Concomitant]
     Active Substance: VANCOMYCIN
  20. IMBRUVICA [Suspect]
     Active Substance: IBRUTINIB
     Indication: ACUTE LYMPHOCYTIC LEUKAEMIA
     Route: 048
     Dates: start: 20160623
  21. VITAMINE C [Concomitant]
     Active Substance: ASCORBIC ACID
  22. ENZYME [Concomitant]
  23. IMBRUVICA [Suspect]
     Active Substance: IBRUTINIB
     Indication: CHRONIC LYMPHOCYTIC LEUKAEMIA
     Route: 048
     Dates: start: 20160623
  24. IMBRUVICA [Suspect]
     Active Substance: IBRUTINIB
     Indication: CHRONIC LYMPHOCYTIC LEUKAEMIA
     Route: 048
     Dates: start: 201412, end: 201506
  25. PRILOSEC [Concomitant]
     Active Substance: OMEPRAZOLE MAGNESIUM
  26. ASPIRIN. [Concomitant]
     Active Substance: ASPIRIN
     Route: 048
  27. MULTIVITAMINS [Concomitant]
     Active Substance: VITAMINS
  28. SUPREP BOWEL PREP [Concomitant]
     Active Substance: MAGNESIUM SULFATE\POTASSIUM SULFATE\SODIUM SULFATE
     Route: 048
  29. PACERONE [Concomitant]
     Active Substance: AMIODARONE HYDROCHLORIDE
     Route: 048
  30. PREDNISONE. [Concomitant]
     Active Substance: PREDNISONE
  31. IMBRUVICA [Suspect]
     Active Substance: IBRUTINIB
     Indication: CHRONIC LYMPHOCYTIC LEUKAEMIA
     Route: 048
     Dates: start: 20141115
  32. DIGESTIVE ENZYME [Concomitant]
     Active Substance: UNSPECIFIED INGREDIENT
     Route: 048
  33. NASONEX [Concomitant]
     Active Substance: MOMETASONE FUROATE
  34. IMBRUVICA [Suspect]
     Active Substance: IBRUTINIB
     Indication: ACUTE LYMPHOCYTIC LEUKAEMIA
     Route: 048
     Dates: start: 20141115
  35. BENTYL [Concomitant]
     Active Substance: DICYCLOMINE HYDROCHLORIDE
     Indication: ABDOMINAL PAIN
     Route: 048
  36. IMBRUVICA [Suspect]
     Active Substance: IBRUTINIB
     Indication: CHRONIC LYMPHOCYTIC LEUKAEMIA
     Route: 048
     Dates: start: 201511, end: 20160606
  37. AMOXICILLIN. [Concomitant]
     Active Substance: AMOXICILLIN
  38. TUMS [Concomitant]
     Active Substance: CALCIUM CARBONATE
     Route: 048
  39. RITUXAN [Suspect]
     Active Substance: RITUXIMAB
     Indication: PRODUCT USED FOR UNKNOWN INDICATION
     Route: 065
  40. LACTOBACILLUS ACIDOPHILUS [Concomitant]
     Active Substance: LACTOBACILLUS ACIDOPHILUS
     Route: 048

REACTIONS (5)
  - Adverse drug reaction [Unknown]
  - Off label use [Unknown]
  - Rash [Unknown]
  - Incorrect dose administered [Unknown]
  - Diarrhoea [Recovered/Resolved]

NARRATIVE: CASE EVENT DATE: 20141115
